FAERS Safety Report 9870282 (Version 2)
Quarter: 2014Q1

REPORT INFORMATION
  Report Type: Spontaneous
  Country: FR (occurrence: FR)
  Receive Date: 20140205
  Receipt Date: 20140218
  Transmission Date: 20141002
  Serious: Yes (Hospitalization)
  Sender: FDA-Public Use
  Company Number: FR-ASTRAZENECA-2014SE07196

PATIENT
  Age: 86 Year
  Sex: Male

DRUGS (6)
  1. RHINOCORT [Suspect]
     Indication: PHARYNGEAL DISORDER
     Dosage: ONE PULVERISATION OF 64 UG IN EACH NOSTRIL IN THE MORNING AND IN THE EVENING
     Route: 045
     Dates: start: 201309
  2. PLAVIX [Concomitant]
  3. KARDEGIC [Concomitant]
  4. ZOXAN [Concomitant]
     Indication: BENIGN PROSTATIC HYPERPLASIA
  5. UNSPECIFIED MEDICATION [Concomitant]
     Indication: DYSPEPSIA
  6. NEBIVOLOL [Concomitant]

REACTIONS (2)
  - Transient ischaemic attack [Recovering/Resolving]
  - Epistaxis [Recovered/Resolved]
